FAERS Safety Report 9234924 (Version 1)
Quarter: 2013Q2

REPORT INFORMATION
  Report Type: Spontaneous
  Country: US (occurrence: US)
  Receive Date: 20130416
  Receipt Date: 20130416
  Transmission Date: 20140414
  Serious: No
  Sender: FDA-Public Use
  Company Number: US-BANPHARM-20120270

PATIENT
  Age: 59 Year
  Sex: Female
  Weight: 81 kg

DRUGS (7)
  1. ALEVE LIQUID GELS 220 MG [Suspect]
     Dosage: 2 TO 3 DF, SEVERAL TIMES A DAY,
     Route: 048
     Dates: start: 201202, end: 20121016
  2. METOPROLOL [Concomitant]
  3. SIMVASTATIN [Concomitant]
  4. AMLODIPINE [Concomitant]
  5. L-THYROXINE [Concomitant]
  6. MIDNIGHT NATURAL HERB [Concomitant]
  7. MIDNIGHT FOR MENOPAUSE [Concomitant]

REACTIONS (1)
  - Urticaria [Not Recovered/Not Resolved]
